FAERS Safety Report 4524352-7 (Version None)
Quarter: 2004Q4

REPORT INFORMATION
  Report Type: 
  Country: None (occurrence: None)
  Receive Date: 20041119
  Receipt Date: 20040923
  Transmission Date: 20050328
  Serious: Yes (Other)
  Sender: FDA-Public Use
  Company Number: PHEH2004US10245

PATIENT
  Age: 68 Year
  Sex: Female

DRUGS (6)
  1. ZELNORM [Suspect]
     Indication: FAECALOMA
     Dosage: 6 MG, BID, ORAL
     Route: 048
     Dates: start: 20040923
  2. LACTAID (TILACTASE) [Concomitant]
  3. PREMARIN [Concomitant]
  4. PRILOSEC [Concomitant]
  5. LEVOXYL [Concomitant]
  6. NORVASC [Concomitant]

REACTIONS (5)
  - DIZZINESS [None]
  - HEADACHE [None]
  - LOOSE STOOLS [None]
  - NAUSEA [None]
  - RHINITIS [None]
